FAERS Safety Report 21395590 (Version 1)
Quarter: 2022Q3

REPORT INFORMATION
  Report Type: Spontaneous
  Country: CA (occurrence: CA)
  Receive Date: 20220930
  Receipt Date: 20220930
  Transmission Date: 20221026
  Serious: Yes (Other)
  Sender: FDA-Public Use
  Company Number: None

PATIENT
  Age: 56 Year
  Sex: Female

DRUGS (6)
  1. PACLITAXEL [Suspect]
     Active Substance: PACLITAXEL
     Indication: Ovarian cancer
     Dosage: EVERY 1 HOURS
     Route: 042
  2. BENADRYL [Concomitant]
     Active Substance: DIPHENHYDRAMINE HYDROCHLORIDE
     Indication: Hypersensitivity
     Route: 042
  3. DEXAMETHASONE [Concomitant]
     Active Substance: DEXAMETHASONE
     Indication: Hypersensitivity
     Dosage: 2 EVERY 2 DAYS, PO
     Route: 048
  4. EPINEPHRINE [Concomitant]
     Active Substance: EPINEPHRINE
     Route: 030
  5. HYDROCORTISONE [Concomitant]
     Active Substance: HYDROCORTISONE
     Route: 042
  6. OXYGEN [Concomitant]
     Active Substance: OXYGEN
     Dosage: 2L

REACTIONS (8)
  - Abdominal pain [Unknown]
  - Back pain [Unknown]
  - Chest discomfort [Unknown]
  - Flushing [Unknown]
  - Hypertension [Unknown]
  - Hypotension [Unknown]
  - Photopsia [Unknown]
  - Tachycardia [Unknown]
